FAERS Safety Report 7001780-1 (Version None)
Quarter: 2010Q3

REPORT INFORMATION
  Report Type: 
  Country: None (occurrence: None)
  Receive Date: 20100920
  Receipt Date: 20100721
  Transmission Date: 20110219
  Serious: No
  Sender: FDA-Public Use
  Company Number: US-ASTRAZENECA-2009UW14004

PATIENT
  Age: 60 Year
  Sex: Male
  Weight: 86.6 kg

DRUGS (3)
  1. SEROQUEL [Suspect]
     Indication: POST-TRAUMATIC STRESS DISORDER
     Dosage: 100 MG TAB HALF BY MOUTH EVERY DAY AT BED TIME
     Route: 048
     Dates: start: 20030926, end: 20100426
  2. SEROQUEL [Suspect]
     Indication: SLEEP DISORDER
     Dosage: 100 MG TAB HALF BY MOUTH EVERY DAY AT BED TIME
     Route: 048
     Dates: start: 20030926, end: 20100426
  3. LEXAPRO [Concomitant]
     Dates: start: 20070101

REACTIONS (3)
  - MUSCULAR WEAKNESS [None]
  - OBESITY [None]
  - TYPE 2 DIABETES MELLITUS [None]
